FAERS Safety Report 5887568-3 (Version None)
Quarter: 2008Q3

REPORT INFORMATION
  Report Type: 
  Country: None (occurrence: None)
  Receive Date: 20080917
  Receipt Date: 20080917
  Transmission Date: 20090109
  Serious: No
  Sender: FDA-Public Use
  Company Number: None

PATIENT
  Age: 70 Year
  Sex: Male
  Weight: 108.9 kg

DRUGS (1)
  1. DILTIAZEM HCL [Suspect]
     Indication: ATRIAL FIBRILLATION
     Dosage: 120 MG EVERY DAY PO
     Route: 048
     Dates: start: 20080424, end: 20080611

REACTIONS (2)
  - ATRIAL FIBRILLATION [None]
  - DRUG HYPERSENSITIVITY [None]
